FAERS Safety Report 4792144-X (Version None)
Quarter: 2005Q4

REPORT INFORMATION
  Report Type: 
  Country: None (occurrence: None)
  Receive Date: 20051006
  Receipt Date: 20050923
  Transmission Date: 20060501
  Serious: Yes (Hospitalization)
  Sender: FDA-Public Use
  Company Number: DSA_70830_2005

PATIENT
  Age: 54 Year
  Sex: Male
  Weight: 82.5547 kg

DRUGS (5)
  1. AZATHIOPRINE [Suspect]
     Indication: CROHN'S DISEASE
     Dosage: DF
  2. INFLIXIMAB (RECOMBINANT) [Suspect]
     Indication: CROHN'S DISEASE
     Dosage: 5 MG/KG, IV
     Route: 042
     Dates: start: 20021018
  3. PROTONIX [Suspect]
     Indication: CROHN'S DISEASE
     Dosage: DF
  4. ACETAMINOPHEN [Concomitant]
  5. ANTIHISTAMINE [Concomitant]

REACTIONS (1)
  - GASTROINTESTINAL HAEMORRHAGE [None]
